FAERS Safety Report 5336266-3 (Version None)
Quarter: 2007Q2

REPORT INFORMATION
  Report Type: 
  Country: None (occurrence: None)
  Receive Date: 20070315
  Receipt Date: 20070209
  Transmission Date: 20071010
  Serious: No
  Sender: FDA-Public Use
  Company Number: BDI-009128

PATIENT
  Sex: Female

DRUGS (1)
  1. MULTIHANCE [Suspect]
     Dosage: 18 ML ONCE IV
     Route: 042
     Dates: start: 20070209, end: 20070209

REACTIONS (4)
  - LACRIMATION INCREASED [None]
  - NAUSEA [None]
  - PARAESTHESIA ORAL [None]
  - SNEEZING [None]
